FAERS Safety Report 16178709 (Version 1)
Quarter: 2019Q2

REPORT INFORMATION
  Report Type: Spontaneous
  Country: DE (occurrence: DE)
  Receive Date: 20190410
  Receipt Date: 20190410
  Transmission Date: 20190711
  Serious: No
  Sender: FDA-Public Use
  Company Number: DE-ALKEM LABORATORIES LIMITED-DE-ALKEM-2018-09506

PATIENT
  Sex: Female

DRUGS (1)
  1. QUETIAPINE FUMARATE. [Suspect]
     Active Substance: QUETIAPINE FUMARATE
     Indication: SCHIZOPHRENIA
     Dosage: 125 MG, UNK
     Route: 065

REACTIONS (6)
  - Restlessness [Unknown]
  - Paraesthesia [Unknown]
  - Dyspnoea [Unknown]
  - Self-injurious ideation [Unknown]
  - Asthenia [Unknown]
  - Dizziness [Unknown]
